FAERS Safety Report 25201382 (Version 1)
Quarter: 2025Q2

REPORT INFORMATION
  Report Type: Report from Study
  Country: ES (occurrence: ES)
  Receive Date: 20250416
  Receipt Date: 20250416
  Transmission Date: 20250716
  Serious: Yes (Other)
  Sender: AUROBINDO
  Company Number: ES-ELI_LILLY_AND_COMPANY-ES202102011068

PATIENT

DRUGS (1)
  1. PEMETREXED [Suspect]
     Active Substance: PEMETREXED
     Indication: Neoplasm malignant
     Route: 065

REACTIONS (1)
  - Cutaneous lupus erythematosus [Unknown]
